FAERS Safety Report 14153564 (Version 1)
Quarter: 2017Q4

REPORT INFORMATION
  Report Type: Spontaneous
  Country: US (occurrence: US)
  Receive Date: 20171102
  Receipt Date: 20171102
  Transmission Date: 20180321
  Serious: No
  Sender: FDA-Public Use
  Company Number: US-SA-2017SA146952

PATIENT
  Age: 66 Year
  Sex: Male
  Weight: 78.4 kg

DRUGS (10)
  1. OMEPRAZOLE. [Concomitant]
     Active Substance: OMEPRAZOLE
     Dosage: TABLET, DELAYED RELEASE
     Route: 048
  2. COUMADIN [Concomitant]
     Active Substance: WARFARIN SODIUM
     Indication: DEEP VEIN THROMBOSIS
     Dosage: 10-10-9
     Route: 065
     Dates: start: 1991
  3. LORAZEPAM. [Concomitant]
     Active Substance: LORAZEPAM
     Route: 048
  4. PRALUENT [Suspect]
     Active Substance: ALIROCUMAB
     Indication: LOW DENSITY LIPOPROTEIN INCREASED
     Route: 058
     Dates: start: 201606, end: 20170531
  5. ALIROCUMAB PREFILLED PEN [Suspect]
     Active Substance: ALIROCUMAB
     Indication: LOW DENSITY LIPOPROTEIN INCREASED
     Dates: start: 201606, end: 20170531
  6. CELEBREX [Concomitant]
     Active Substance: CELECOXIB
     Indication: PSORIATIC ARTHROPATHY
     Dosage: STOPPED WHILE ON PRED
     Route: 048
  7. ATENOL [Concomitant]
     Active Substance: ATENOLOL
     Route: 048
  8. LORTAB [Concomitant]
     Active Substance: ACETAMINOPHEN\HYDROCODONE BITARTRATE
     Route: 048
  9. SILDENAFIL. [Concomitant]
     Active Substance: SILDENAFIL
  10. TESTOSTERONE. [Concomitant]
     Active Substance: TESTOSTERONE

REACTIONS (11)
  - Cerumen impaction [Unknown]
  - Chronic sinusitis [Not Recovered/Not Resolved]
  - Sinus disorder [Unknown]
  - Sensitivity of teeth [Unknown]
  - Nasopharyngitis [Not Recovered/Not Resolved]
  - Bone disorder [Unknown]
  - Sinusitis [Not Recovered/Not Resolved]
  - Computerised tomogram abnormal [Recovered/Resolved]
  - Headache [Unknown]
  - Rhinorrhoea [Unknown]
  - Oedema mucosal [Unknown]

NARRATIVE: CASE EVENT DATE: 2016
